FAERS Safety Report 13589472 (Version 1)
Quarter: 2017Q2

REPORT INFORMATION
  Report Type: Spontaneous
  Country: US (occurrence: US)
  Receive Date: 20170526
  Receipt Date: 20170526
  Transmission Date: 20170830
  Serious: No
  Sender: FDA-Public Use
  Company Number: None

PATIENT
  Age: 63 Year
  Sex: Male

DRUGS (1)
  1. REVLIMID [Suspect]
     Active Substance: LENALIDOMIDE
     Indication: PLASMA CELL MYELOMA
     Route: 048
     Dates: start: 20141031, end: 20150112

REACTIONS (4)
  - Pruritus [None]
  - Rash erythematous [None]
  - Lip swelling [None]
  - Ocular hyperaemia [None]

NARRATIVE: CASE EVENT DATE: 20141229
